FAERS Safety Report 6187612-2 (Version None)
Quarter: 2009Q2

REPORT INFORMATION
  Report Type: 
  Country: None (occurrence: None)
  Receive Date: 20090511
  Receipt Date: 20090429
  Transmission Date: 20091009
  Serious: Yes (Other)
  Sender: FDA-Public Use
  Company Number: 8044280

PATIENT
  Age: 48 Year
  Sex: Female
  Weight: 86.36 kg

DRUGS (9)
  1. CIMZIA [Suspect]
     Indication: CROHN'S DISEASE
     Dosage: 400 MG SC
     Route: 058
     Dates: start: 20090209, end: 20090331
  2. PREDNISONE [Concomitant]
  3. MAGNESIUM SULFATE [Concomitant]
  4. AVANDIA [Concomitant]
  5. SYNTHROID [Concomitant]
  6. TRICOR [Concomitant]
  7. ZANTAC [Concomitant]
  8. CLONOPIN [Concomitant]
  9. PREMEARIN [Concomitant]

REACTIONS (2)
  - DYSPHAGIA [None]
  - OBSTRUCTIVE AIRWAYS DISORDER [None]
